FAERS Safety Report 24682816 (Version 2)
Quarter: 2025Q4

REPORT INFORMATION
  Report Type: Spontaneous
  Country: US (occurrence: US)
  Receive Date: 20241201
  Receipt Date: 20251103
  Transmission Date: 20260118
  Serious: No
  Sender: SANOFI AVENTIS
  Company Number: US-SA-2024SA349168

PATIENT
  Age: 19 Year
  Sex: Male
  Weight: 113.23 kg

DRUGS (4)
  1. DUPIXENT [Suspect]
     Active Substance: DUPILUMAB
     Indication: Dermatitis allergic
     Dosage: 300 MG, QOW
     Route: 058
     Dates: start: 2024
  2. ALLEGRA ALLERGY [Concomitant]
     Active Substance: FEXOFENADINE HYDROCHLORIDE
     Dosage: UNK
  3. CYCLOSPORINE [Concomitant]
     Active Substance: CYCLOSPORINE
  4. VITAMINS [Concomitant]
     Active Substance: VITAMINS

REACTIONS (8)
  - Ocular hyperaemia [Unknown]
  - Diarrhoea [Unknown]
  - Pruritus [Unknown]
  - Erythema [Unknown]
  - Eye pruritus [Unknown]
  - Dermatitis atopic [Unknown]
  - Rash [Unknown]
  - Product dose omission issue [Unknown]

NARRATIVE: CASE EVENT DATE: 20240101
